FAERS Safety Report 20511405 (Version 2)
Quarter: 2022Q2

REPORT INFORMATION
  Report Type: Spontaneous
  Country: US (occurrence: None)
  Receive Date: 20220224
  Receipt Date: 20220404
  Transmission Date: 20220721
  Serious: No
  Sender: FDA-Public Use
  Company Number: 2022A056837

PATIENT
  Age: 21981 Day
  Sex: Female
  Weight: 140.6 kg

DRUGS (1)
  1. BYDUREON BCISE [Suspect]
     Active Substance: EXENATIDE
     Indication: Diabetes mellitus
     Route: 058
     Dates: start: 2021

REACTIONS (6)
  - Visual impairment [Unknown]
  - Gait inability [Unknown]
  - Cataract [Unknown]
  - Needle issue [Unknown]
  - Device malfunction [Unknown]
  - Device leakage [Unknown]

NARRATIVE: CASE EVENT DATE: 20220107
